FAERS Safety Report 8979083 (Version 1)
Quarter: 2012Q4

REPORT INFORMATION
  Report Type: 
  Country: CA (occurrence: CA)
  Receive Date: 20121221
  Receipt Date: 20121221
  Transmission Date: 20130627
  Serious: Yes (Other)
  Sender: FDA-Public Use
  Company Number: CA-PFIZER INC-2012321881

PATIENT
  Age: 43 Year
  Sex: Male

DRUGS (6)
  1. CELEBREX [Suspect]
     Indication: BACK PAIN
     Dosage: 200 mg, 1x/day
     Dates: start: 20000302
  2. CELEBREX [Suspect]
     Indication: NECK PAIN
     Dosage: 200 mg, 1x/day, as needed
     Dates: start: 20010108
  3. CELEBREX [Suspect]
     Indication: MUSCLE PAIN
     Dosage: 100 mg, 1x/day, as needed
     Dates: start: 20010620
  4. CELEBREX [Suspect]
     Dosage: 200 mg, UNK
     Dates: start: 20030226
  5. CELEBREX [Suspect]
     Dosage: 300 mg, UNK
     Dates: start: 20030227
  6. ZOLOFT [Concomitant]
     Indication: DEPRESSION
     Dosage: 75 mg, 1x/day

REACTIONS (5)
  - Hyperhidrosis [Unknown]
  - Dyspepsia [Unknown]
  - Disorientation [Unknown]
  - Cyanosis [Unknown]
  - Pain in jaw [Unknown]
